FAERS Safety Report 9770301 (Version 1)
Quarter: 2013Q4

REPORT INFORMATION
  Report Type: Spontaneous
  Country: RU (occurrence: RU)
  Receive Date: 20131218
  Receipt Date: 20131218
  Transmission Date: 20140711
  Serious: Yes (Other)
  Sender: FDA-Public Use
  Company Number: RU-AMGEN-RUSSP2013088441

PATIENT
  Sex: 0

DRUGS (7)
  1. VECTIBIX [Suspect]
     Indication: COLORECTAL CANCER
     Dosage: 6 MG/KG, UNK
     Route: 065
  2. LEUCOVORIN                         /00566701/ [Concomitant]
     Indication: COLORECTAL CANCER METASTATIC
     Dosage: 400 MG/M2, UNK
  3. LEUCOVORIN                         /00566701/ [Concomitant]
     Indication: METASTASES TO LIVER
  4. 5 FLUOROURACIL                     /00098801/ [Concomitant]
     Indication: COLORECTAL CANCER METASTATIC
     Dosage: BOLUS DOSING 400 MG/M2, FOLLOWED BY THE 46-HOUR WITH INFUSION 2400 MG/M2, EVERY OTHER WEEK
  5. 5 FLUOROURACIL                     /00098801/ [Concomitant]
     Indication: METASTASES TO LIVER
     Dosage: BOLUS DOSING 400 MG/M2, FOLLOWED BY THE 46-HOUR WITH INFUSION 2400 MG/M2, EVERY OTHER WEEK
  6. OXALIPLATIN [Concomitant]
     Indication: COLORECTAL CANCER METASTATIC
     Dosage: 85 MG/M2, UNK
  7. OXALIPLATIN [Concomitant]
     Indication: METASTASES TO LIVER

REACTIONS (7)
  - Biloma [Unknown]
  - Wound abscess [Unknown]
  - Pneumonia [Unknown]
  - Infection [Unknown]
  - Postoperative fever [Unknown]
  - Disease progression [Unknown]
  - Skin toxicity [Unknown]
